FAERS Safety Report 6609178-2 (Version None)
Quarter: 2010Q1

REPORT INFORMATION
  Report Type: 
  Country: None (occurrence: None)
  Receive Date: 20100301
  Receipt Date: 20100219
  Transmission Date: 20100710
  Serious: Yes (Hospitalization, Other)
  Sender: FDA-Public Use
  Company Number: US-AMGEN-QUU368549

PATIENT
  Sex: Female
  Weight: 71.3 kg

DRUGS (11)
  1. NEULASTA [Suspect]
     Indication: CHEMOTHERAPY
     Route: 058
     Dates: start: 20090714, end: 20090915
  2. NEUPOGEN [Suspect]
     Indication: CHEMOTHERAPY
  3. TAXOTERE [Concomitant]
     Dates: start: 20090717, end: 20091029
  4. CARBOPLATIN [Concomitant]
     Dates: start: 20090717, end: 20091029
  5. HERCEPTIN [Concomitant]
     Dates: start: 20090717
  6. KEPPRA [Concomitant]
  7. HEPARIN [Concomitant]
     Dates: start: 20090717
  8. ALOXI [Concomitant]
     Dates: start: 20090717, end: 20091029
  9. DECADRON [Concomitant]
     Dates: start: 20090717, end: 20091029
  10. EMEND [Concomitant]
     Dates: start: 20090717, end: 20091229
  11. ADVAIR DISKUS 100/50 [Concomitant]

REACTIONS (6)
  - ADVERSE DRUG REACTION [None]
  - BONE PAIN [None]
  - CHILLS [None]
  - PYREXIA [None]
  - VISUAL IMPAIRMENT [None]
  - WHITE BLOOD CELL COUNT DECREASED [None]
